FAERS Safety Report 9290862 (Version 2)
Quarter: 2013Q2

REPORT INFORMATION
  Report Type: Spontaneous
  Country: US (occurrence: US)
  Receive Date: 20130515
  Receipt Date: 20130516
  Transmission Date: 20140414
  Serious: Yes (Hospitalization, Other)
  Sender: FDA-Public Use
  Company Number: US-BAYER-2013-059098

PATIENT
  Age: 35 Year
  Sex: Female

DRUGS (15)
  1. YAZ [Suspect]
     Dosage: UNK
     Dates: start: 2008, end: 2009
  2. OCELLA [Suspect]
     Dosage: UNK
     Dates: start: 2008, end: 2009
  3. YASMIN [Suspect]
     Dosage: UNK
     Dates: start: 2008, end: 2009
  4. CLARITHROMYCIN [Concomitant]
     Dosage: 500 MG, UNK
     Dates: start: 20090302
  5. FLUTICASONE [Concomitant]
     Dosage: 50 ?G, UNK
     Dates: start: 20090302
  6. LEVOTHYROXINE [Concomitant]
     Dosage: 50 ?G, UNK
     Dates: start: 20090307
  7. LEVOTHYROXINE [Concomitant]
     Dosage: 50 ?G, UNK
     Dates: start: 20090327
  8. LEVOTHYROXINE [Concomitant]
     Dosage: 50 ?G, UNK
     Dates: start: 20090501
  9. TRIAMTERENE AND HYDROCHLOROTHIAZIDE [Concomitant]
     Dosage: 50-25 MG
     Dates: start: 20090307
  10. TRIAMTERENE AND HYDROCHLOROTHIAZIDE [Concomitant]
     Dosage: 50-25 MG
     Dates: start: 20090412
  11. ACETAMINOPHEN W/OXYCODONE [Concomitant]
     Dosage: UNK
     Dates: start: 20090425
  12. ACETAMINOPHEN W/OXYCODONE [Concomitant]
     Dosage: UNK
     Dates: start: 20090506
  13. CEPHALEXIN [Concomitant]
  14. ACETAMINOPHEN W/PROPOXYPHENE [Concomitant]
  15. SYNTHROID [Concomitant]

REACTIONS (10)
  - Deep vein thrombosis [None]
  - Thrombophlebitis superficial [None]
  - Pain [None]
  - Injury [None]
  - General physical health deterioration [None]
  - Thrombosis [None]
  - Abdominal pain [None]
  - Emotional distress [None]
  - Anxiety [None]
  - Pain [None]
